FAERS Safety Report 17308363 (Version 2)
Quarter: 2020Q1

REPORT INFORMATION
  Report Type: Spontaneous
  Country: RO (occurrence: RO)
  Receive Date: 20200123
  Receipt Date: 20200124
  Transmission Date: 20200409
  Serious: Yes (Other)
  Sender: FDA-Public Use
  Company Number: NVSC2020RO013134

PATIENT
  Age: 64 Year
  Sex: Female

DRUGS (2)
  1. CANDESARTAN. [Concomitant]
     Active Substance: CANDESARTAN
     Indication: PULMONARY SARCOIDOSIS
     Dosage: UNK
     Route: 065
  2. BISOPROLOL [Suspect]
     Active Substance: BISOPROLOL
     Indication: PULMONARY SARCOIDOSIS
     Dosage: UNK
     Route: 065

REACTIONS (3)
  - Systemic lupus erythematosus [Recovered/Resolved]
  - Neutrophilic dermatosis [Recovered/Resolved]
  - Urticaria [Recovered/Resolved]
